FAERS Safety Report 4792679-X (Version None)
Quarter: 2005Q4

REPORT INFORMATION
  Report Type: 
  Country: None (occurrence: None)
  Receive Date: 20051010
  Receipt Date: 20050929
  Transmission Date: 20060501
  Serious: Yes (Other)
  Sender: FDA-Public Use
  Company Number: US-MERCK-0510USA00340

PATIENT
  Age: 70 Year
  Sex: Female
  Weight: 79 kg

DRUGS (6)
  1. VIOXX [Suspect]
     Indication: ARTHRITIS
     Route: 048
     Dates: end: 20011001
  2. GLUCOPHAGE [Concomitant]
     Route: 065
  3. ZOCOR [Concomitant]
     Route: 065
  4. LOTREL [Concomitant]
     Route: 065
  5. SYNTHROID [Concomitant]
     Route: 065
  6. ADVAIR DISKUS 100/50 [Concomitant]
     Route: 065

REACTIONS (3)
  - CEREBROVASCULAR ACCIDENT [None]
  - OVERDOSE [None]
  - UPPER LIMB FRACTURE [None]
